FAERS Safety Report 7203713-1 (Version None)
Quarter: 2010Q4

REPORT INFORMATION
  Report Type: 
  Country: None (occurrence: None)
  Receive Date: 20101220
  Receipt Date: 20101203
  Transmission Date: 20110411
  Serious: Yes (Hospitalization, Other)
  Sender: FDA-Public Use
  Company Number: 019971

PATIENT
  Sex: Female
  Weight: 91.2 kg

DRUGS (13)
  1. CIMZIA [Suspect]
     Indication: CROHN'S DISEASE
     Dosage: 400 MG 1X/4 WEEKS, 400 MG/ML SUBCUTANEOUS
     Route: 058
     Dates: start: 20091211
  2. PENTASA [Concomitant]
  3. PANTOPRAZOLE SODIUM [Concomitant]
  4. FAMOTIDINE [Concomitant]
  5. SIMVASTATIN [Concomitant]
  6. LANTUS [Concomitant]
  7. METFORMIN HCL [Concomitant]
  8. NEXIUM [Concomitant]
  9. GLIMEPIRIDE [Concomitant]
  10. AMBIEN [Concomitant]
  11. OXYCODONE HCL AND ACETAMINOPHEN [Concomitant]
  12. LISINOPRIL [Concomitant]
  13. TEMAZEPAM [Concomitant]

REACTIONS (15)
  - ABDOMINAL PAIN [None]
  - CARPAL TUNNEL SYNDROME [None]
  - CONSTIPATION [None]
  - DIARRHOEA HAEMORRHAGIC [None]
  - ECHOCARDIOGRAM ABNORMAL [None]
  - GROIN PAIN [None]
  - HAEMORRHOIDS [None]
  - INJECTION SITE REACTION [None]
  - MIDDLE INSOMNIA [None]
  - MYOCARDIAL ISCHAEMIA [None]
  - PAIN IN EXTREMITY [None]
  - RASH [None]
  - THROMBOPHLEBITIS SUPERFICIAL [None]
  - THROMBOSIS [None]
  - VASCULAR PSEUDOANEURYSM [None]
